FAERS Safety Report 8305735-6 (Version None)
Quarter: 2012Q2

REPORT INFORMATION
  Report Type: 
  Country: None (occurrence: None)
  Receive Date: 20120423
  Receipt Date: 20120413
  Transmission Date: 20120825
  Serious: Yes (Hospitalization, Other)
  Sender: FDA-Public Use
  Company Number: MA-MUTUAL PHARMACEUTICAL COMPANY, INC.-CLHC20120027

PATIENT
  Age: 14 Year
  Sex: Female

DRUGS (2)
  1. COLCHICINE [Suspect]
     Indication: BEHCET'S SYNDROME
     Route: 065
  2. COLCHICINE [Suspect]
     Indication: SUICIDE ATTEMPT
     Route: 048

REACTIONS (12)
  - TOXICITY TO VARIOUS AGENTS [None]
  - ABDOMINAL RIGIDITY [None]
  - ABDOMINAL PAIN [None]
  - HYPOVENTILATION [None]
  - AREFLEXIA [None]
  - HYPOTENSION [None]
  - DIARRHOEA [None]
  - PARALYSIS [None]
  - VOMITING [None]
  - HEART RATE INCREASED [None]
  - PANCYTOPENIA [None]
  - ALOPECIA [None]
